FAERS Safety Report 6719665-4 (Version None)
Quarter: 2010Q2

REPORT INFORMATION
  Report Type: 
  Country: None (occurrence: None)
  Receive Date: 20100511
  Receipt Date: 20100501
  Transmission Date: 20101027
  Serious: Yes (Hospitalization)
  Sender: FDA-Public Use
  Company Number: PL-JNJFOC-20100408224

PATIENT
  Sex: Female
  Weight: 70 kg

DRUGS (15)
  1. GOLIMUMAB [Suspect]
     Indication: RHEUMATOID ARTHRITIS
     Route: 058
  2. GOLIMUMAB [Suspect]
     Route: 058
  3. PLACEBO [Suspect]
     Indication: RHEUMATOID ARTHRITIS
     Route: 058
  4. METHOTREXATE [Suspect]
     Indication: RHEUMATOID ARTHRITIS
     Route: 048
  5. METHOTREXATE [Suspect]
     Route: 048
  6. METHOTREXATE [Suspect]
     Route: 048
  7. METHOTREXATE [Suspect]
     Route: 048
  8. METHOTREXATE [Suspect]
     Route: 048
  9. METHOTREXATE [Suspect]
     Route: 048
  10. CYCLO-PROGYNOVA [Concomitant]
  11. ALFACALCIDOL [Concomitant]
  12. CALCIUM CARBONATE [Concomitant]
  13. METHYLPREDNISOLONE 4MG TAB [Concomitant]
  14. FOLIC ACID [Concomitant]
  15. METHOTREXATE [Concomitant]

REACTIONS (1)
  - SINUSITIS [None]
